FAERS Safety Report 7658963-7 (Version None)
Quarter: 2011Q3

REPORT INFORMATION
  Report Type: 
  Country: None (occurrence: None)
  Receive Date: 20110805
  Receipt Date: 20110801
  Transmission Date: 20111222
  Serious: Yes (Death)
  Sender: FDA-Public Use
  Company Number: GR-GILEAD-2011-0042232

PATIENT
  Sex: Male

DRUGS (6)
  1. RANEXA [Suspect]
     Indication: ANGINA PECTORIS
     Dates: start: 20110101
  2. VALSARTAN [Suspect]
  3. RANEXA [Suspect]
     Dates: start: 20110201
  4. CLOPIDOGREL [Concomitant]
  5. MONOKET [Concomitant]
  6. PLAVIX [Concomitant]

REACTIONS (4)
  - RESPIRATORY TRACT INFECTION [None]
  - CHEST PAIN [None]
  - DISCOMFORT [None]
  - OEDEMA [None]
